FAERS Safety Report 8076128-4 (Version None)
Quarter: 2012Q1

REPORT INFORMATION
  Report Type: 
  Country: None (occurrence: None)
  Receive Date: 20120127
  Receipt Date: 20111004
  Transmission Date: 20120608
  Serious: No
  Sender: FDA-Public Use
  Company Number: US-GLAXOSMITHKLINE-A0948305A

PATIENT
  Age: 29 Year
  Sex: Female
  Weight: 87.7 kg

DRUGS (2)
  1. HUMIRA [Suspect]
     Indication: CROHN'S DISEASE
     Route: 065
     Dates: start: 20110811, end: 20110811
  2. WELLBUTRIN [Suspect]
     Indication: DEPRESSION
     Route: 065

REACTIONS (2)
  - NIGHT SWEATS [None]
  - JOINT SWELLING [None]
